FAERS Safety Report 19673359 (Version 4)
Quarter: 2022Q1

REPORT INFORMATION
  Report Type: Report from Study
  Country: US (occurrence: US)
  Receive Date: 20210809
  Receipt Date: 20220217
  Transmission Date: 20220423
  Serious: Yes (Other)
  Sender: FDA-Public Use
  Company Number: US-AUROBINDO-AUR-APL-2021-033222

PATIENT
  Sex: Female
  Weight: 2.33 kg

DRUGS (9)
  1. ATAZANAVIR [Suspect]
     Active Substance: ATAZANAVIR
     Indication: Product used for unknown indication
     Dosage: 300 MILLIGRAM, ONCE A DAY
     Route: 064
     Dates: start: 20200512, end: 20200706
  2. ATAZANAVIR [Suspect]
     Active Substance: ATAZANAVIR
     Dosage: 300 MILLIGRAM, ONCE A DAY
     Route: 064
     Dates: start: 20200706, end: 20200911
  3. ATAZANAVIR [Suspect]
     Active Substance: ATAZANAVIR
     Dosage: 300 MILLIGRAM, ONCE A DAY
     Route: 064
     Dates: start: 20200911, end: 20201126
  4. RITONAVIR [Suspect]
     Active Substance: RITONAVIR
     Indication: Product used for unknown indication
     Dosage: 1 DOSAGE FORM
     Route: 064
     Dates: start: 20200706, end: 20200911
  5. EVOTAZ [Suspect]
     Active Substance: ATAZANAVIR SULFATE\COBICISTAT
     Indication: Product used for unknown indication
     Dosage: 1 DOSAGE FORM
     Route: 064
     Dates: end: 20200512
  6. BIKTARVY [Suspect]
     Active Substance: BICTEGRAVIR SODIUM\EMTRICITABINE\TENOFOVIR ALAFENAMIDE FUMARATE
     Indication: Product used for unknown indication
     Dosage: UNK
     Route: 064
     Dates: end: 20200512
  7. TRIUMEQ [Suspect]
     Active Substance: ABACAVIR SULFATE\DOLUTEGRAVIR SODIUM\LAMIVUDINE
     Indication: Product used for unknown indication
     Dosage: 1 DOSAGE FORM
     Route: 064
     Dates: start: 20200512
  8. RITONAVIR [Suspect]
     Active Substance: RITONAVIR
     Indication: Product used for unknown indication
     Dosage: 1 DOSAGE FORM
     Route: 064
     Dates: start: 20200512, end: 20200706
  9. RITONAVIR [Suspect]
     Active Substance: RITONAVIR
     Dosage: 1 DOSAGE FORM
     Route: 064
     Dates: start: 20200911, end: 20201126

REACTIONS (2)
  - Hyperbilirubinaemia [Unknown]
  - Foetal exposure during pregnancy [Unknown]
